FAERS Safety Report 6912262-7 (Version None)
Quarter: 2010Q3

REPORT INFORMATION
  Report Type: 
  Country: None (occurrence: None)
  Receive Date: 20100806
  Receipt Date: 20100728
  Transmission Date: 20110219
  Serious: No
  Sender: FDA-Public Use
  Company Number: B0631011A

PATIENT
  Sex: Female
  Weight: 51 kg

DRUGS (3)
  1. RELENZA [Suspect]
     Indication: INFLUENZA
     Dosage: 20MG PER DAY
     Route: 055
     Dates: start: 20091207, end: 20091211
  2. TOMIRON [Concomitant]
     Indication: PHARYNGITIS
     Dosage: 300MG PER DAY
     Route: 048
     Dates: start: 20100601, end: 20100604
  3. CALONAL [Concomitant]
     Indication: PHARYNGITIS
     Dosage: 300MG PER DAY
     Route: 048
     Dates: start: 20100601, end: 20100604

REACTIONS (2)
  - DELIVERY [None]
  - DRUG EXPOSURE DURING PREGNANCY [None]
